FAERS Safety Report 6132839-9 (Version None)
Quarter: 2009Q1

REPORT INFORMATION
  Report Type: 
  Country: None (occurrence: None)
  Receive Date: 20090324
  Receipt Date: 20090324
  Transmission Date: 20090719
  Serious: Yes (Other)
  Sender: FDA-Public Use
  Company Number: None

PATIENT
  Age: 48 Year
  Sex: Female
  Weight: 78.4723 kg

DRUGS (7)
  1. CITALOPRAM HYDROBROMIDE [Suspect]
     Indication: ANXIETY
     Dosage: ORAL, ONCE DAILY
     Route: 048
     Dates: start: 20090124, end: 20090306
  2. CITALOPRAM HYDROBROMIDE [Suspect]
     Indication: DEPRESSION
     Dosage: ORAL, ONCE DAILY
     Route: 048
     Dates: start: 20090124, end: 20090306
  3. HYDROCHLOROTHIAZIDE [Concomitant]
  4. COZAAR [Concomitant]
  5. CRESTOR [Concomitant]
  6. BUPROPION HCL [Concomitant]
  7. NEXIUM [Concomitant]

REACTIONS (6)
  - DIZZINESS [None]
  - MUSCLE DISORDER [None]
  - NAUSEA [None]
  - UNEVALUABLE EVENT [None]
  - WEIGHT DECREASED [None]
  - WITHDRAWAL SYNDROME [None]
